FAERS Safety Report 7251496-1 (Version None)
Quarter: 2011Q1

REPORT INFORMATION
  Report Type: 
  Country: None (occurrence: None)
  Receive Date: 20110128
  Receipt Date: 20110125
  Transmission Date: 20110831
  Serious: Yes (Death, Hospitalization)
  Sender: FDA-Public Use
  Company Number: PHHO2004US12484

PATIENT
  Sex: Female
  Weight: 67 kg

DRUGS (2)
  1. GLEEVEC [Suspect]
     Indication: GASTROINTESTINAL STROMAL TUMOUR
     Dosage: 200 MG, TID
     Route: 048
     Dates: start: 20010314, end: 20040831
  2. GLEEVEC [Suspect]
     Dosage: UNK
     Dates: end: 20040909

REACTIONS (2)
  - ABDOMINAL PAIN LOWER [None]
  - NEOPLASM MALIGNANT [None]
